FAERS Safety Report 24642072 (Version 1)
Quarter: 2024Q4

REPORT INFORMATION
  Report Type: Spontaneous
  Country: AT (occurrence: AT)
  Receive Date: 20241120
  Receipt Date: 20241120
  Transmission Date: 20250115
  Serious: Yes (Other)
  Sender: AMGEN
  Company Number: AT-AMGEN-AUTSP2024225651

PATIENT
  Age: 65 Year
  Sex: Male

DRUGS (1)
  1. VECTIBIX [Suspect]
     Active Substance: PANITUMUMAB
     Indication: Colorectal cancer metastatic
     Dosage: 6 MILLIGRAM/KILOGRAM, Q2WK
     Route: 065
     Dates: start: 202106, end: 202203

REACTIONS (6)
  - Colorectal cancer metastatic [Unknown]
  - Folliculitis [Unknown]
  - Depression [Unknown]
  - Decreased appetite [Unknown]
  - Paronychia [Unknown]
  - Fatigue [Unknown]
